FAERS Safety Report 9598053 (Version 1)
Quarter: 2013Q4

REPORT INFORMATION
  Report Type: Spontaneous
  Country: US (occurrence: US)
  Receive Date: 20131004
  Receipt Date: 20131004
  Transmission Date: 20140711
  Serious: No
  Sender: FDA-Public Use
  Company Number: US-AMGEN-USASP2013022292

PATIENT
  Age: 56 Year
  Sex: Male
  Weight: 106.58 kg

DRUGS (17)
  1. ENBREL [Suspect]
     Indication: PRODUCT USED FOR UNKNOWN INDICATION
     Dosage: 50 MG, QWK
     Route: 058
  2. FLUTICASONE [Concomitant]
     Dosage: 50 MUG, UNK
  3. ALLEGRA [Concomitant]
     Indication: PSORIATIC ARTHROPATHY
     Dosage: 180 MG, UNK
  4. HUMIRA [Concomitant]
     Dosage: 40 MG/0.8
  5. TRIAMCINOLON                       /00031901/ [Concomitant]
     Dosage: 0.1 %, UNK
  6. CITALOPRAM [Concomitant]
     Dosage: 10 MG, UNK
  7. VITAMIN D                          /00107901/ [Concomitant]
     Dosage: 400 UNIT, UNK
  8. B12                                /00056201/ [Concomitant]
     Dosage: 1 MG, UNK
  9. CLONAZEPAM [Concomitant]
     Dosage: 0.5 MG, UNK
  10. CLOBETASOL [Concomitant]
     Dosage: 0.05 %, UNK
  11. VICODIN ES [Concomitant]
     Dosage: 7.5-750
  12. DOXEPIN HYDROCHLORIDE [Concomitant]
     Dosage: 10 MG, UNK
  13. ZOMIG [Concomitant]
     Dosage: 2.5 MG, UNK
  14. CELEBREX [Concomitant]
     Dosage: 400 MG, UNK
  15. CALCIPOTRIENE [Concomitant]
     Dosage: 0.005 %, UNK
  16. PREDNISONE [Concomitant]
     Dosage: UNK
  17. ACETAMINOPHEN [Concomitant]
     Dosage: 500 MG, UNK

REACTIONS (5)
  - Cataract [Unknown]
  - Drug ineffective [Unknown]
  - Mycotic allergy [Recovering/Resolving]
  - Psoriatic arthropathy [Unknown]
  - Sinusitis [Recovering/Resolving]
